FAERS Safety Report 6093161-2 (Version None)
Quarter: 2009Q1

REPORT INFORMATION
  Report Type: 
  Country: None (occurrence: None)
  Receive Date: 20090223
  Receipt Date: 20090210
  Transmission Date: 20090719
  Serious: Yes (Hospitalization)
  Sender: FDA-Public Use
  Company Number: 2009-00574

PATIENT
  Age: 74 Year
  Sex: Female

DRUGS (10)
  1. VELCADE [Suspect]
     Indication: MULTIPLE MYELOMA
     Dates: start: 20081001
  2. DELTISON (PREDNISONE, CALCIUM PHOSPHATE, MAGNESIUM TRISILICATE) [Suspect]
     Indication: DRUG USE FOR UNKNOWN INDICATION
     Dates: start: 20081001
  3. VAGIFEM [Concomitant]
  4. OMEPRAZOLE [Concomitant]
  5. MOVICOL (SODIUM BICARBONATE, SODIUM CHLORIDE,MACROGOL, POTASSIUM CHLOR [Concomitant]
  6. LEVOTHYROXINE SODIUM [Concomitant]
  7. ACETAMINOPHEN [Concomitant]
  8. BEHEPAN (CYANOCOBALAMIN) [Concomitant]
  9. MORPHINE [Concomitant]
  10. ALKERAN [Suspect]
     Indication: DRUG USE FOR UNKNOWN INDICATION
     Dates: start: 20081001

REACTIONS (3)
  - FAECAL INCONTINENCE [None]
  - POLYNEUROPATHY [None]
  - URINARY RETENTION [None]
